FAERS Safety Report 9193834 (Version 1)
Quarter: 2013Q1

REPORT INFORMATION
  Report Type: Spontaneous
  Country: CA (occurrence: CA)
  Receive Date: 20130327
  Receipt Date: 20130327
  Transmission Date: 20140127
  Serious: Yes (Other)
  Sender: FDA-Public Use
  Company Number: CA-TEVA-393783USA

PATIENT
  Age: 25 Year
  Sex: Female

DRUGS (1)
  1. PLAN B [Suspect]
     Indication: CONTRACEPTION
     Dosage: 2 PILLS (2 X 0.75 MG)
     Route: 048
     Dates: start: 20130316, end: 20130316

REACTIONS (1)
  - Pharyngitis streptococcal [Not Recovered/Not Resolved]
